FAERS Safety Report 23329358 (Version 2)
Quarter: 2023Q4

REPORT INFORMATION
  Report Type: Report from Study
  Country: JP (occurrence: JP)
  Receive Date: 20231222
  Receipt Date: 20231227
  Transmission Date: 20240109
  Serious: Yes (Hospitalization)
  Sender: FDA-Public Use
  Company Number: JP-INSMED, INC.-2023-04591-JP

PATIENT
  Age: 86 Year
  Sex: Male

DRUGS (2)
  1. ARIKAYCE [Suspect]
     Active Substance: AMIKACIN
     Indication: Product used for unknown indication
     Dosage: UNK
     Route: 055
     Dates: start: 20231117
  2. OXYGEN [Concomitant]
     Active Substance: OXYGEN
     Indication: Product used for unknown indication
     Route: 045

REACTIONS (8)
  - Hospitalisation [Unknown]
  - Dysphonia [Unknown]
  - Cough [Unknown]
  - Dyspnoea [Unknown]
  - Incorrect product administration duration [Unknown]
  - Product design issue [Unknown]
  - Device issue [Unknown]
  - Device maintenance issue [Unknown]

NARRATIVE: CASE EVENT DATE: 20231101
